FAERS Safety Report 21879778 (Version 2)
Quarter: 2023Q1

REPORT INFORMATION
  Report Type: Spontaneous
  Country: ES (occurrence: ES)
  Receive Date: 20230118
  Receipt Date: 20230120
  Transmission Date: 20230417
  Serious: Yes (Other)
  Sender: FDA-Public Use
  Company Number: ES-BAXTER-2023BAX010775

PATIENT
  Age: 65 Year
  Sex: Male

DRUGS (13)
  1. DOXORUBICIN [Suspect]
     Active Substance: DOXORUBICIN
     Indication: Plasma cell myeloma
     Dosage: RESCUE CHEMOTHERAPY PROTOCOL, VTD-PACE, ADJUSTED TO 50%
     Route: 065
  2. CYCLOPHOSPHAMIDE [Suspect]
     Active Substance: CYCLOPHOSPHAMIDE
     Indication: Plasma cell myeloma
     Dosage: INDUCTION CHEMOTHERAPY WITH VTD, THALIDOMIDE SUSPENDED AND CHANGED TO CYCLOPHOSPHAMIDE
     Route: 065
  3. CYCLOPHOSPHAMIDE [Suspect]
     Active Substance: CYCLOPHOSPHAMIDE
     Dosage: RESCUE CHEMOTHERAPY PROTOCOL, VTD-PACE
     Route: 065
  4. BORTEZOMIB [Suspect]
     Active Substance: BORTEZOMIB
     Indication: Plasma cell myeloma
     Dosage: 6 CYCLES OF VTD THERAPY, INDUCTION CHEMOTHERAPY
     Route: 065
  5. BORTEZOMIB [Suspect]
     Active Substance: BORTEZOMIB
     Dosage: RESCUE WITH DVD THERAPY, 3 CYCLES
     Route: 065
  6. TECLISTAMAB [Suspect]
     Active Substance: TECLISTAMAB
     Indication: Plasma cell myeloma
     Dosage: 4TH LINE TREATMENT, 14 CYCLES, ONGOING
     Route: 065
  7. THALIDOMIDE [Suspect]
     Active Substance: THALIDOMIDE
     Indication: Plasma cell myeloma
     Dosage: 6 CYCLES OF VTD THERAPY, INDUCTION CHEMOTHERAPY, MAINTENANCE
     Route: 065
  8. DEXAMETHASONE [Suspect]
     Active Substance: DEXAMETHASONE
     Indication: Plasma cell myeloma
     Dosage: 6 CYCLES OF VTD THERAPY, INDUCTION CHEMOTHERAPY
     Route: 065
  9. DEXAMETHASONE [Suspect]
     Active Substance: DEXAMETHASONE
     Dosage: RESCUE WITH DVD THERAPY
     Route: 065
  10. LENALIDOMIDE [Suspect]
     Active Substance: LENALIDOMIDE
     Indication: Plasma cell myeloma
     Dosage: 6 CYCLES THERAPY
     Route: 065
  11. DARATUMUMAB [Suspect]
     Active Substance: DARATUMUMAB
     Indication: Plasma cell myeloma
     Dosage: RESCUE WITH DVD THERAPY, 3 CYCLES
     Route: 065
  12. CISPLATIN [Suspect]
     Active Substance: CISPLATIN
     Indication: Plasma cell myeloma
     Dosage: RESCUE CHEMOTHERAPY PROTOCOL, VTD-PACE
     Route: 065
  13. ETOPOSIDE [Suspect]
     Active Substance: ETOPOSIDE
     Indication: Plasma cell myeloma recurrent
     Dosage: RESCUE CHEMOTHERAPY PROTOCOL, VTD-PACE, ADJUSTED TO 50%
     Route: 065

REACTIONS (11)
  - Plasma cell myeloma recurrent [Recovered/Resolved]
  - Toxic skin eruption [Unknown]
  - Rash pruritic [Unknown]
  - Neuropathy peripheral [Unknown]
  - Febrile neutropenia [Unknown]
  - Staphylococcal bacteraemia [Unknown]
  - Pyrexia [Unknown]
  - Hypertransaminasaemia [Unknown]
  - Disease progression [Unknown]
  - Asthenia [Unknown]
  - Thrombophlebitis [Unknown]
